FAERS Safety Report 16766130 (Version 1)
Quarter: 2019Q3

REPORT INFORMATION
  Report Type: Spontaneous
  Country: GB (occurrence: GB)
  Receive Date: 20190903
  Receipt Date: 20190903
  Transmission Date: 20191005
  Serious: Yes (Other)
  Sender: FDA-Public Use
  Company Number: GB-ACCORD-153311

PATIENT
  Age: 77 Year
  Sex: Female
  Weight: 79 kg

DRUGS (18)
  1. IRBESARTAN. [Concomitant]
     Active Substance: IRBESARTAN
     Dates: start: 20180731
  2. MOMETASONE [Concomitant]
     Active Substance: MOMETASONE
     Dosage: INTO EACH NOSTRIL
     Route: 045
     Dates: start: 20190701, end: 20190805
  3. PREGABALIN. [Concomitant]
     Active Substance: PREGABALIN
     Dates: start: 20161215
  4. INCRUSE ELLIPTA [Concomitant]
     Active Substance: UMECLIDINIUM BROMIDE
     Indication: CHRONIC OBSTRUCTIVE PULMONARY DISEASE
     Route: 055
     Dates: start: 20181102
  5. ACIDEX [Concomitant]
     Active Substance: CALCIUM CARBONATE\SODIUM ALGINATE\SODIUM BICARBONATE
     Dosage: AFTER MEALS AND BEFORE BED
     Dates: start: 20190321
  6. FLUCONAZOLE. [Concomitant]
     Active Substance: FLUCONAZOLE
     Dosage: USE AS DIRECTED
     Dates: start: 20190715, end: 20190722
  7. INVITA-D3 [Concomitant]
     Dosage: DRINK THE CONTENTS OF ONE AMPOULE
     Dates: start: 20181207
  8. DOXAZOSIN [Suspect]
     Active Substance: DOXAZOSIN MESYLATE
     Indication: PRODUCT USED FOR UNKNOWN INDICATION
     Dosage: AT NIGHT
     Dates: start: 20190807
  9. SALBUTAMOL [Concomitant]
     Active Substance: ALBUTEROL
     Dates: start: 20190318
  10. PROCHLORPERAZINE. [Concomitant]
     Active Substance: PROCHLORPERAZINE
     Dosage: 1 BD
     Dates: start: 20190726
  11. RIVAROXABAN [Concomitant]
     Active Substance: RIVAROXABAN
     Dates: start: 20190226
  12. CINNARIZINE [Concomitant]
     Active Substance: CINNARIZINE
     Dosage: 1 BD
     Dates: start: 20190730, end: 20190814
  13. DIAZEPAM. [Concomitant]
     Active Substance: DIAZEPAM
     Dosage: 1 BD
     Dates: start: 20190531, end: 20190614
  14. ONDANSETRON [Concomitant]
     Active Substance: ONDANSETRON
     Dates: start: 20190715, end: 20190716
  15. AMOXICILLIN. [Concomitant]
     Active Substance: AMOXICILLIN
     Dates: start: 20190531, end: 20190607
  16. DOXYCYCLINE. [Concomitant]
     Active Substance: DOXYCYCLINE
     Dosage: TAKE TWO TABLETS NOW AND THEN ONE A DAY
     Dates: start: 20190725, end: 20190801
  17. OMEPRAZOLE. [Concomitant]
     Active Substance: OMEPRAZOLE
     Dates: start: 20180613
  18. PREDNISOLONE. [Concomitant]
     Active Substance: PREDNISOLONE
     Dosage: FOR 5 DAYS
     Dates: start: 20190531, end: 20190605

REACTIONS (1)
  - Cystitis [Recovered/Resolved]

NARRATIVE: CASE EVENT DATE: 20190814
